FAERS Safety Report 23690356 (Version 1)
Quarter: 2024Q2

REPORT INFORMATION
  Report Type: Report from Study
  Country: CA (occurrence: CA)
  Receive Date: 20240401
  Receipt Date: 20240401
  Transmission Date: 20240716
  Serious: Yes (Other)
  Sender: FDA-Public Use
  Company Number: CA-ABBVIE-5696611

PATIENT
  Age: 85 Year
  Sex: Male

DRUGS (1)
  1. RINVOQ [Suspect]
     Active Substance: UPADACITINIB
     Indication: Colitis ulcerative
     Dosage: 45MG PER DAY FOR THE FIRST 8 WEEKS
     Route: 048
     Dates: start: 20240208

REACTIONS (5)
  - Cardiac pacemaker insertion [Unknown]
  - Cardiac disorder [Unknown]
  - Colitis ulcerative [Unknown]
  - Therapeutic product effect decreased [Unknown]
  - Gait inability [Unknown]

NARRATIVE: CASE EVENT DATE: 20240101
